FAERS Safety Report 7021493-X (Version None)
Quarter: 2010Q3

REPORT INFORMATION
  Report Type: 
  Country: None (occurrence: None)
  Receive Date: 20100928
  Receipt Date: 20100813
  Transmission Date: 20110219
  Serious: Yes (Hospitalization)
  Sender: FDA-Public Use
  Company Number: PIR# 1008012B

PATIENT
  Age: 44 Year
  Sex: Female
  Weight: 49.8957 kg

DRUGS (1)
  1. STERILE WATER FOR INJECTION USP, B. BRAUN MEDICAL [Suspect]
     Indication: LITHOTRIPSY
     Dosage: IV ~ 700CC
     Route: 042
     Dates: start: 20100813

REACTIONS (2)
  - RENAL FAILURE [None]
  - WRONG DRUG ADMINISTERED [None]
